FAERS Safety Report 12084687 (Version 1)
Quarter: 2016Q1

REPORT INFORMATION
  Report Type: Spontaneous
  Country: US (occurrence: US)
  Receive Date: 20160217
  Receipt Date: 20160217
  Transmission Date: 20160526
  Serious: No
  Sender: FDA-Public Use
  Company Number: GXBR2015US000894

PATIENT
  Age: 55 Year
  Sex: Male
  Weight: 88.44 kg

DRUGS (1)
  1. IMIQUIMOD. [Suspect]
     Active Substance: IMIQUIMOD
     Indication: ANOGENITAL WARTS
     Dosage: 1 DF, QD
     Route: 061
     Dates: start: 20150129, end: 20150313

REACTIONS (4)
  - Application site erythema [Not Recovered/Not Resolved]
  - Application site irritation [Not Recovered/Not Resolved]
  - Wound secretion [Not Recovered/Not Resolved]
  - Skin erosion [Not Recovered/Not Resolved]

NARRATIVE: CASE EVENT DATE: 201502
